FAERS Safety Report 4289042-7 (Version None)
Quarter: 2004Q1

REPORT INFORMATION
  Report Type: 
  Country: None (occurrence: None)
  Receive Date: 20040126
  Receipt Date: 20030923
  Transmission Date: 20041129
  Serious: No
  Sender: FDA-Public Use
  Company Number: USA030740751

PATIENT
  Age: 83 Year
  Sex: Female
  Weight: 52 kg

DRUGS (15)
  1. FORTEO [Suspect]
     Indication: OSTEOPOROSIS
     Dosage: 20 UG/DAY
     Dates: start: 20030701
  2. OMEPRAZOLE [Concomitant]
  3. OSCAL 500-D [Concomitant]
  4. IMDUR [Concomitant]
  5. LIPITOR [Concomitant]
  6. ASPIRIN [Concomitant]
  7. ATENOLOL [Concomitant]
  8. GARLIC [Concomitant]
  9. POTASSIUM [Concomitant]
  10. LASIX [Concomitant]
  11. NEURONTIN [Concomitant]
  12. SLO-MAG (MAGNESIUM CHLORIDE ANHYDROUS) [Concomitant]
  13. ALLABEE C-800 [Concomitant]
  14. FOSAMAX [Concomitant]
  15. RELAFEN [Concomitant]

REACTIONS (7)
  - ASTHENIA [None]
  - INJECTION SITE DISCOLOURATION [None]
  - INJECTION SITE DISCOMFORT [None]
  - OEDEMA PERIPHERAL [None]
  - PAIN IN EXTREMITY [None]
  - SKIN NODULE [None]
  - TREMOR [None]
